FAERS Safety Report 13780406 (Version 2)
Quarter: 2018Q1

REPORT INFORMATION
  Report Type: Spontaneous
  Country: US (occurrence: US)
  Receive Date: 20170724
  Receipt Date: 20180323
  Transmission Date: 20180508
  Serious: Yes (Other)
  Sender: FDA-Public Use
  Company Number: US-009507513-1707USA008278

PATIENT
  Age: 61 Year
  Sex: Female

DRUGS (6)
  1. RISPERIDONE. [Concomitant]
     Active Substance: RISPERIDONE
     Dosage: UNKNOWN
     Route: 065
  2. VITAMINS (UNSPECIFIED) [Concomitant]
     Active Substance: VITAMINS
     Dosage: UNKNOWN
     Route: 065
  3. TUMS [Concomitant]
     Active Substance: CALCIUM CARBONATE
     Dosage: UNKNOWN
     Route: 065
  4. KEFLEX [Concomitant]
     Active Substance: CEPHALEXIN
     Dosage: UNKNOWN
     Route: 065
  5. DULCOLAX STOOL SOFTENER [Concomitant]
     Active Substance: DOCUSATE SODIUM
     Dosage: UNKNOWN
     Route: 065
  6. ZEPATIER [Suspect]
     Active Substance: ELBASVIR\GRAZOPREVIR
     Indication: HEPATITIS C
     Dosage: 1 TABLET (50-100 MG), QD
     Route: 048
     Dates: start: 201707, end: 201707

REACTIONS (2)
  - Dyspepsia [Not Recovered/Not Resolved]
  - Hyperhidrosis [Not Recovered/Not Resolved]

NARRATIVE: CASE EVENT DATE: 201707
